FAERS Safety Report 23063294 (Version 1)
Quarter: 2023Q4

REPORT INFORMATION
  Report Type: Spontaneous
  Country: US (occurrence: None)
  Receive Date: 20231012
  Receipt Date: 20231012
  Transmission Date: 20240110
  Serious: No
  Sender: FDA-Public Use
  Company Number: None

PATIENT
  Age: 72 Year
  Sex: Male
  Weight: 75.6 kg

DRUGS (12)
  1. AMIODARONE HYDROCHLORIDE [Suspect]
     Active Substance: AMIODARONE HYDROCHLORIDE
     Indication: Atrial fibrillation
     Dosage: FREQUENCY : TWICE A DAY;?
     Route: 048
     Dates: start: 20231004, end: 20231010
  2. WARFARIN [Concomitant]
     Active Substance: WARFARIN
  3. ATORVASTATIN CALCIUM [Concomitant]
     Active Substance: ATORVASTATIN CALCIUM
  4. Flecanaide Acetate [Concomitant]
  5. METHYLPHENIDATE HYDROCHLORIDE [Concomitant]
     Active Substance: METHYLPHENIDATE HYDROCHLORIDE
  6. KAL multivitamins [Concomitant]
  7. Solgar fish oil [Concomitant]
  8. Solgar calcium [Concomitant]
  9. IRON [Concomitant]
     Active Substance: IRON
  10. LOW DOSE ASPIRIN [Concomitant]
     Active Substance: ASPIRIN
  11. VITAMIN D3 [Concomitant]
     Active Substance: CHOLECALCIFEROL
  12. COENZYME Q10 [Concomitant]
     Active Substance: DIETARY SUPPLEMENT\UBIDECARENONE

REACTIONS (3)
  - Constipation [None]
  - Paraesthesia [None]
  - Impaired driving ability [None]

NARRATIVE: CASE EVENT DATE: 20231010
